FAERS Safety Report 21058798 (Version 2)
Quarter: 2022Q3

REPORT INFORMATION
  Report Type: Spontaneous
  Country: US (occurrence: US)
  Receive Date: 20220708
  Receipt Date: 20220831
  Transmission Date: 20221026
  Serious: Yes (Hospitalization, Other)
  Sender: FDA-Public Use
  Company Number: US-TAKEDA-2022TUS044172

PATIENT
  Age: 42 Year
  Sex: Female

DRUGS (3)
  1. ADDERALL XR [Suspect]
     Active Substance: AMPHETAMINE ASPARTATE\AMPHETAMINE SULFATE\DEXTROAMPHETAMINE SACCHARATE\DEXTROAMPHETAMINE SULFATE
     Indication: Attention deficit hyperactivity disorder
     Dosage: UNK
     Route: 065
  2. ENTRESTO [Suspect]
     Active Substance: SACUBITRIL\VALSARTAN
     Indication: Product used for unknown indication
     Dosage: UNK
     Route: 065
     Dates: start: 202005
  3. METOLAZONE [Suspect]
     Active Substance: METOLAZONE
     Indication: Product used for unknown indication
     Dosage: UNK
     Route: 065
     Dates: start: 202005

REACTIONS (18)
  - Weight increased [Recovering/Resolving]
  - Oedema [Recovering/Resolving]
  - Hyperhidrosis [Recovering/Resolving]
  - Amnesia [Recovering/Resolving]
  - Cardiac failure [Unknown]
  - Disability [Not Recovered/Not Resolved]
  - Aortic valve replacement [Recovering/Resolving]
  - Renal impairment [Recovering/Resolving]
  - Feeling abnormal [Recovering/Resolving]
  - Poor quality sleep [Recovering/Resolving]
  - Weight decreased [Recovered/Resolved]
  - Pain [Recovering/Resolving]
  - Anxiety [Recovering/Resolving]
  - Nervousness [Recovered/Resolved]
  - Implantable defibrillator insertion [Unknown]
  - Fear [Recovering/Resolving]
  - Heart rate increased [Recovered/Resolved]
  - Cough [Recovered/Resolved]

NARRATIVE: CASE EVENT DATE: 20200101
